FAERS Safety Report 15751094 (Version 1)
Quarter: 2018Q4

REPORT INFORMATION
  Report Type: Spontaneous
  Country: US (occurrence: US)
  Receive Date: 20181221
  Receipt Date: 20181221
  Transmission Date: 20190205
  Serious: No
  Sender: FDA-Public Use
  Company Number: US-THERAPEUTICSMD-2018TMD00255

PATIENT
  Age: 65 Year
  Sex: Female
  Weight: 53.52 kg

DRUGS (3)
  1. UNSPECIFIED VITAMINS [Concomitant]
     Active Substance: VITAMINS
  2. IMVEXXY [Suspect]
     Active Substance: ESTRADIOL
     Indication: VULVOVAGINAL DISCOMFORT
     Dosage: 4 ?G, 1X/DAY IN THE MORNING; REMAINED UPRIGHT AND ACTIVE
     Route: 067
     Dates: start: 20181003, end: 20181013
  3. NEXIUM [Concomitant]
     Active Substance: ESOMEPRAZOLE MAGNESIUM

REACTIONS (4)
  - Vulvovaginal pain [Recovering/Resolving]
  - Off label use [Recovered/Resolved]
  - Vulvovaginal burning sensation [Recovering/Resolving]
  - Vulvovaginal erythema [Recovering/Resolving]

NARRATIVE: CASE EVENT DATE: 201810
